FAERS Safety Report 5194649-9 (Version None)
Quarter: 2006Q4

REPORT INFORMATION
  Report Type: 
  Country: None (occurrence: None)
  Receive Date: 20061226
  Receipt Date: 20061226
  Transmission Date: 20070319
  Serious: Yes (Hospitalization)
  Sender: FDA-Public Use
  Company Number: None

PATIENT
  Sex: Female

DRUGS (1)
  1. TOPOTECAN - 4MG VIAL -GSK [Suspect]
     Indication: OESOPHAGEAL CARCINOMA
     Dosage: 6MG Q WEEK IV
     Route: 042
     Dates: start: 20061031, end: 20061205

REACTIONS (5)
  - BACK PAIN [None]
  - MALIGNANT NEOPLASM PROGRESSION [None]
  - MOBILITY DECREASED [None]
  - OESOPHAGEAL CARCINOMA [None]
  - SPINAL CORD COMPRESSION [None]
